FAERS Safety Report 19381176 (Version 1)
Quarter: 2021Q2

REPORT INFORMATION
  Report Type: Other
  Country: SE (occurrence: SE)
  Receive Date: 20210607
  Receipt Date: 20210607
  Transmission Date: 20210717
  Serious: Yes (Life-Threatening)
  Sender: FDA-Public Use
  Company Number: SE-ASTELLAS-2021US020199

PATIENT
  Age: 69 Year
  Sex: Female
  Weight: 59 kg

DRUGS (1)
  1. VESICARE [Suspect]
     Active Substance: SOLIFENACIN SUCCINATE
     Indication: URGE INCONTINENCE
     Route: 048
     Dates: start: 2008, end: 20201119

REACTIONS (10)
  - Parosmia [Not Recovered/Not Resolved]
  - Dry mouth [Recovered/Resolved]
  - Vision blurred [Recovered/Resolved]
  - Memory impairment [Not Recovered/Not Resolved]
  - Urinary tract infection [Recovered/Resolved]
  - Confusional state [Unknown]
  - Taste disorder [Not Recovered/Not Resolved]
  - Hunger [Recovered/Resolved]
  - Constipation [Recovered/Resolved]
  - Hypohidrosis [Recovered/Resolved]

NARRATIVE: CASE EVENT DATE: 2010
